FAERS Safety Report 5220841-0 (Version None)
Quarter: 2007Q1

REPORT INFORMATION
  Report Type: 
  Country: None (occurrence: None)
  Receive Date: 20070126
  Receipt Date: 20070118
  Transmission Date: 20070707
  Serious: Yes (Other)
  Sender: FDA-Public Use
  Company Number: NSADSS2001037896

PATIENT
  Sex: Female

DRUGS (8)
  1. REMICADE [Suspect]
     Route: 041
     Dates: start: 20010327, end: 20011002
  2. REMICADE [Suspect]
     Route: 041
     Dates: start: 20010327, end: 20011002
  3. REMICADE [Suspect]
     Route: 041
     Dates: start: 20010327, end: 20011002
  4. REMICADE [Suspect]
     Route: 041
     Dates: start: 20010327, end: 20011002
  5. REMICADE [Suspect]
     Indication: RHEUMATOID ARTHRITIS
     Route: 041
     Dates: start: 20010327, end: 20011002
  6. METHOTREXATE [Concomitant]
     Route: 048
  7. CELECOXIB [Concomitant]
     Route: 065
  8. FOLATE [Concomitant]
     Route: 048

REACTIONS (6)
  - DEMYELINATION [None]
  - IIIRD NERVE PARALYSIS [None]
  - LYMPHOMA [None]
  - MONONEURITIS [None]
  - RADICULOPATHY [None]
  - VASCULITIS [None]
